FAERS Safety Report 9715748 (Version 1)
Quarter: 2013Q4

REPORT INFORMATION
  Report Type: Spontaneous
  Country: FR (occurrence: FR)
  Receive Date: 20131127
  Receipt Date: 20131127
  Transmission Date: 20140711
  Serious: Yes (Hospitalization)
  Sender: FDA-Public Use
  Company Number: FR-BAYER-2013-141503

PATIENT
  Age: 59 Year
  Sex: Female

DRUGS (6)
  1. CIFLOX [Suspect]
     Dosage: UNK
     Route: 048
     Dates: start: 20130122, end: 20130130
  2. TERALITHE [Suspect]
     Indication: BIPOLAR DISORDER
     Dosage: 40 MG, QD
     Route: 048
  3. TERALITHE [Suspect]
     Indication: BIPOLAR DISORDER
     Dosage: UNK
  4. CISPLATIN [Suspect]
     Dosage: 120 MG, UNK
     Route: 042
     Dates: start: 20130117, end: 20130117
  5. TAXOTERE [Suspect]
     Dosage: 120 MG, UNK
     Route: 042
     Dates: start: 20130117, end: 20130117
  6. FLUOROURACIL [Suspect]
     Dosage: 1200 MG, QD
     Route: 042
     Dates: start: 20130117, end: 20130121

REACTIONS (2)
  - Renal failure acute [Recovered/Resolved]
  - Antipsychotic drug level increased [Recovered/Resolved]
